FAERS Safety Report 20490933 (Version 1)
Quarter: 2022Q1

REPORT INFORMATION
  Report Type: Spontaneous
  Country: US (occurrence: US)
  Receive Date: 20220218
  Receipt Date: 20220218
  Transmission Date: 20220423
  Serious: Yes (Hospitalization, Other)
  Sender: FDA-Public Use
  Company Number: US-AMGEN-USASP2022027938

PATIENT
  Age: 0 Year
  Sex: Male

DRUGS (1)
  1. ENBREL [Suspect]
     Active Substance: ETANERCEPT
     Indication: Exposure during pregnancy
     Dosage: UNK
     Route: 064

REACTIONS (2)
  - Premature baby [Recovered/Resolved]
  - Low birth weight baby [Not Recovered/Not Resolved]

NARRATIVE: CASE EVENT DATE: 20220131
